FAERS Safety Report 8848640 (Version 2)
Quarter: 2012Q4

REPORT INFORMATION
  Report Type: Report from Study
  Country: JP (occurrence: JP)
  Receive Date: 20121018
  Receipt Date: 20121031
  Transmission Date: 20130627
  Serious: Yes (Hospitalization, Other)
  Sender: FDA-Public Use
  Company Number: JP-ROCHE-589882

PATIENT
  Age: 68 Year
  Sex: Female

DRUGS (25)
  1. TOCILIZUMAB [Suspect]
     Indication: RHEUMATOID ARTHRITIS
     Route: 041
     Dates: start: 20080530, end: 20080530
  2. TOCILIZUMAB [Suspect]
     Route: 041
     Dates: start: 20080627, end: 20080627
  3. TOCILIZUMAB [Suspect]
     Route: 041
     Dates: start: 20080725, end: 20080725
  4. TOCILIZUMAB [Suspect]
     Route: 041
     Dates: start: 20080822, end: 20080822
  5. TOCILIZUMAB [Suspect]
     Route: 041
     Dates: start: 20090206, end: 20090206
  6. TOCILIZUMAB [Suspect]
     Route: 041
     Dates: start: 20090303, end: 20090303
  7. TOCILIZUMAB [Suspect]
     Route: 041
     Dates: start: 20090403, end: 20090403
  8. TOCILIZUMAB [Suspect]
     Route: 041
     Dates: start: 20090508, end: 20110422
  9. TOCILIZUMAB [Suspect]
     Dosage: infusion rate decresed
     Route: 041
  10. ISONIAZID [Concomitant]
     Indication: ANTIBIOTIC PROPHYLAXIS
     Dosage: FORM: ORAL FORMULATION (NOT OTHERWISE SPECIFIED)
     Route: 048
  11. NABOAL [Concomitant]
     Indication: RHEUMATOID ARTHRITIS
     Dosage: DRUG NAME REPORTED AS NABOAL SR, FORM: SUSTAINED RELEASE CAPSULE
     Route: 048
  12. PARIET [Concomitant]
     Indication: PROPHYLAXIS
     Route: 048
  13. MEDICON [Concomitant]
     Dosage: FORM: ORAL FORMULATION (NOT OTHERWISE SPECIFIED)
     Route: 048
  14. LEFTOSE [Concomitant]
     Dosage: FORM: ORAL FORMULATION (NOT OTHERWISE SPECIFIED), NOTE: UNCERTAINTY
     Route: 048
  15. MUCODYNE [Concomitant]
     Dosage: FORM: ORAL FORMULATION (NOT OTHERWISE SPECIFIED)
     Route: 048
  16. DEXAMETHASONE PALMITATE [Concomitant]
     Dosage: ROUTE: INJECTABLE (NOT OTHERWISE SPECIFIED)
     Route: 050
     Dates: start: 20080919, end: 20080919
  17. DEXAMETHASONE PALMITATE [Concomitant]
     Route: 050
     Dates: start: 20081003, end: 20081003
  18. DEXAMETHASONE PALMITATE [Concomitant]
     Route: 050
     Dates: start: 20081017, end: 20081017
  19. DEXAMETHASONE PALMITATE [Concomitant]
     Route: 050
     Dates: start: 20081031, end: 20081031
  20. DEXAMETHASONE PALMITATE [Concomitant]
     Route: 050
     Dates: start: 20081114, end: 20081114
  21. SP [Concomitant]
     Dosage: ROUTE: OROPHARINGEAL, FORM: LOZENGE.
     Route: 049
  22. LIMETHASON [Concomitant]
     Indication: RHEUMATOID ARTHRITIS
     Route: 042
     Dates: start: 20080919, end: 20080919
  23. LIMETHASON [Concomitant]
     Route: 042
     Dates: start: 20081017, end: 20081017
  24. LIMETHASON [Concomitant]
     Route: 042
     Dates: start: 20081031, end: 20081031
  25. LIMETHASON [Concomitant]
     Route: 042
     Dates: start: 20081114, end: 20081114

REACTIONS (4)
  - Herpes zoster [Recovering/Resolving]
  - Malaise [Recovered/Resolved]
  - Fall [Unknown]
  - Fracture [Unknown]
